FAERS Safety Report 24054068 (Version 1)
Quarter: 2024Q3

REPORT INFORMATION
  Report Type: Spontaneous
  Country: US (occurrence: US)
  Receive Date: 20240705
  Receipt Date: 20240705
  Transmission Date: 20241016
  Serious: No
  Sender: JOHNSON AND JOHNSON
  Company Number: US-JNJFOC-20240677859

PATIENT

DRUGS (1)
  1. TOPAMAX [Suspect]
     Active Substance: TOPIRAMATE
     Indication: Migraine
     Route: 048

REACTIONS (3)
  - Eye pruritus [Unknown]
  - Eye swelling [Unknown]
  - Corneal abrasion [Unknown]

NARRATIVE: CASE EVENT DATE: 20240627
